FAERS Safety Report 9153635 (Version 1)
Quarter: 2013Q1

REPORT INFORMATION
  Report Type: Spontaneous
  Country: DK (occurrence: None)
  Receive Date: 20130205
  Receipt Date: 20130205
  Transmission Date: 20140127
  Serious: Yes (Life-Threatening, Hospitalization, Disabling)
  Sender: FDA-Public Use
  Company Number: 2013MA000829

PATIENT
  Age: 62 Year
  Sex: Female

DRUGS (13)
  1. FLUOXETINE [Suspect]
     Indication: DEPRESSION
     Route: 048
     Dates: start: 20130107
  2. CLOBAZAM [Concomitant]
  3. PHENYTOIN [Concomitant]
  4. FERROUS FUMARATE [Concomitant]
  5. CALCEOS [Concomitant]
  6. LEVOTHYROXINE SODIUM [Concomitant]
  7. OLANZAPINE [Concomitant]
  8. TOPIRAMATE [Concomitant]
  9. PARACETAMOL [Concomitant]
  10. HALOPERIDOL [Concomitant]
  11. SENNA [Concomitant]
  12. CHLORPHENAMINE [Concomitant]
  13. PROCYCLIDINE [Concomitant]

REACTIONS (4)
  - Coma scale abnormal [None]
  - Anticonvulsant drug level increased [None]
  - Confusional state [None]
  - Unresponsive to stimuli [None]
